FAERS Safety Report 16142369 (Version 1)
Quarter: 2019Q2

REPORT INFORMATION
  Report Type: Spontaneous
  Country: US (occurrence: US)
  Receive Date: 20190401
  Receipt Date: 20190401
  Transmission Date: 20190711
  Serious: No
  Sender: FDA-Public Use
  Company Number: US-SA-2019SA089169

PATIENT
  Age: 22 Year
  Sex: Male

DRUGS (1)
  1. TUBERSOL [Suspect]
     Active Substance: TUBERCULIN PURIFIED PROTEIN DERIVATIVE
     Indication: TUBERCULIN TEST
     Dosage: 0.1 ML
     Route: 023
     Dates: start: 20190326, end: 20190326

REACTIONS (2)
  - Poor quality product administered [Unknown]
  - Product storage error [Unknown]
